FAERS Safety Report 8807412 (Version 3)
Quarter: 2014Q3

REPORT INFORMATION
  Report Type: Report from Study
  Country: BR (occurrence: BR)
  Receive Date: 20120925
  Receipt Date: 20140708
  Transmission Date: 20150326
  Serious: Yes (Other)
  Sender: FDA-Public Use
  Company Number: BR-ELI_LILLY_AND_COMPANY-BR201202003249

PATIENT
  Sex: Female
  Weight: 53 kg

DRUGS (10)
  1. TERIPARATIDE [Suspect]
     Active Substance: TERIPARATIDE
     Indication: OSTEOPOROSIS
     Dosage: 20 UG, QD
     Route: 058
  2. CELEBRA [Concomitant]
     Active Substance: CELECOXIB
     Indication: SPINAL DISORDER
     Dosage: 1 DF, QD
  3. OMEPRAZOLE. [Concomitant]
     Active Substance: OMEPRAZOLE
     Dosage: 1 DF, UNKNOWN
     Route: 065
  4. TERIPARATIDE [Suspect]
     Active Substance: TERIPARATIDE
     Indication: BONE DISORDER
     Dosage: 20 UG, QD
     Route: 058
  5. TERIPARATIDE [Suspect]
     Active Substance: TERIPARATIDE
     Dosage: 20 UG, 2/W
     Route: 058
  6. CODEX [Concomitant]
     Active Substance: ACETAMINOPHEN\CODEINE PHOSPHATE
     Dosage: UNK, TID
     Route: 065
  7. ARTROLIVE [Concomitant]
     Active Substance: CHONDROITIN SULFATE (BOVINE)\GLUCOSAMINE SULFATE
     Indication: OSTEOARTHRITIS
     Dosage: 2 DF, QD
     Route: 065
  8. TERIPARATIDE [Suspect]
     Active Substance: TERIPARATIDE
     Dosage: 20 UG, 4/W
     Route: 058
  9. PARACETAMOL [Concomitant]
     Active Substance: ACETAMINOPHEN
     Indication: PAIN
     Dosage: UNK, UNKNOWN
     Route: 065
  10. TERIPARATIDE [Suspect]
     Active Substance: TERIPARATIDE
     Dosage: 20 UG, 3/W
     Route: 058

REACTIONS (7)
  - Weight decreased [Not Recovered/Not Resolved]
  - Inappropriate schedule of drug administration [Unknown]
  - Decreased appetite [Unknown]
  - Depression [Unknown]
  - Nausea [Not Recovered/Not Resolved]
  - Incorrect drug administration duration [Unknown]
  - Aphagia [Not Recovered/Not Resolved]
